FAERS Safety Report 6367271-6 (Version None)
Quarter: 2009Q3

REPORT INFORMATION
  Report Type: 
  Country: None (occurrence: None)
  Receive Date: 20090921
  Receipt Date: 20090916
  Transmission Date: 20100115
  Serious: Yes (Disabling, Other)
  Sender: FDA-Public Use
  Company Number: US-ALLERGAN-0908344US

PATIENT
  Age: 37 Year
  Sex: Female
  Weight: 60.771 kg

DRUGS (4)
  1. BOTOX COSMETIC [Suspect]
     Indication: SKIN WRINKLING
     Dosage: 12 UNITS, SINGLE
     Route: 030
     Dates: start: 20090611, end: 20090611
  2. METHYLPREDNISOLONE [Suspect]
     Indication: HYPERSENSITIVITY
     Dosage: 4 MG, QD
     Route: 048
  3. ALLEGRA [Concomitant]
     Indication: HYPERSENSITIVITY
     Dosage: 60 MG, BID PRN
     Route: 048
  4. XANAX [Concomitant]
     Indication: ANXIETY
     Dosage: 0.25 MG, BID PRN
     Route: 048

REACTIONS (31)
  - ABNORMAL SENSATION IN EYE [None]
  - ANXIETY [None]
  - BALANCE DISORDER [None]
  - BINOCULAR EYE MOVEMENT DISORDER [None]
  - BLOOD PRESSURE INCREASED [None]
  - DECREASED APPETITE [None]
  - DISTURBANCE IN ATTENTION [None]
  - DIZZINESS [None]
  - DRY EYE [None]
  - DRY MOUTH [None]
  - DYSPHAGIA [None]
  - FACIAL PALSY [None]
  - FEELING JITTERY [None]
  - HEADACHE [None]
  - HYPERSENSITIVITY [None]
  - HYPOAESTHESIA ORAL [None]
  - INJECTION SITE SWELLING [None]
  - INSOMNIA [None]
  - MADAROSIS [None]
  - MUSCLE TIGHTNESS [None]
  - MUSCLE TWITCHING [None]
  - NAUSEA [None]
  - PAIN IN JAW [None]
  - PANIC REACTION [None]
  - PARAESTHESIA [None]
  - PARAESTHESIA ORAL [None]
  - PHARYNGEAL OEDEMA [None]
  - SKIN TIGHTNESS [None]
  - SWELLING FACE [None]
  - VISUAL IMPAIRMENT [None]
  - WEIGHT DECREASED [None]
